FAERS Safety Report 4645748-9 (Version None)
Quarter: 2005Q2

REPORT INFORMATION
  Report Type: 
  Country: None (occurrence: None)
  Receive Date: 20050425
  Receipt Date: 20050425
  Transmission Date: 20051028
  Serious: Yes (Other)
  Sender: FDA-Public Use
  Company Number: None

PATIENT
  Age: 73 Year
  Sex: Female
  Weight: 65 kg

DRUGS (2)
  1. CISPLATIN [Suspect]
     Indication: ENDOMETRIAL CANCER
     Dosage: 32 MG Q MONTH IV
     Route: 042
     Dates: start: 20041108, end: 20050223
  2. IFOSFAMIDE/MESNA [Concomitant]

REACTIONS (3)
  - DEAFNESS [None]
  - OTOTOXICITY [None]
  - TINNITUS [None]
